FAERS Safety Report 19247817 (Version 2)
Quarter: 2021Q2

REPORT INFORMATION
  Report Type: Spontaneous
  Country: US (occurrence: US)
  Receive Date: 20210512
  Receipt Date: 20210519
  Transmission Date: 20210717
  Serious: No
  Sender: FDA-Public Use
  Company Number: US-ASTRAZENECA-2021A371406

PATIENT
  Age: 59 Year
  Sex: Female
  Weight: 94.3 kg

DRUGS (10)
  1. SERTRALINE [Concomitant]
     Active Substance: SERTRALINE HYDROCHLORIDE
  2. FORXIGA [Suspect]
     Active Substance: DAPAGLIFLOZIN
     Indication: TYPE 2 DIABETES MELLITUS
     Dosage: UNKNOWN
     Route: 048
     Dates: start: 201409
  3. OMEPRAZOLE. [Suspect]
     Active Substance: OMEPRAZOLE
     Route: 048
  4. FORXIGA [Suspect]
     Active Substance: DAPAGLIFLOZIN
     Indication: TYPE 2 DIABETES MELLITUS
     Dosage: 5.0MG UNKNOWN
     Route: 048
     Dates: start: 20170721, end: 20200121
  5. LISINOPRIL. [Concomitant]
     Active Substance: LISINOPRIL
  6. BASAGLAR [Concomitant]
     Active Substance: INSULIN GLARGINE
  7. VICTOZA [Concomitant]
     Active Substance: LIRAGLUTIDE
  8. NOVOLOG [Concomitant]
     Active Substance: INSULIN ASPART
  9. ATORVASTATIN [Concomitant]
     Active Substance: ATORVASTATIN
  10. LINZESS [Concomitant]
     Active Substance: LINACLOTIDE

REACTIONS (3)
  - Mucosal disorder [Recovered/Resolved]
  - Stomatitis [Unknown]
  - Gastric ulcer [Unknown]

NARRATIVE: CASE EVENT DATE: 201912
